FAERS Safety Report 4983079-8 (Version None)
Quarter: 2006Q2

REPORT INFORMATION
  Report Type: 
  Country: None (occurrence: None)
  Receive Date: 20060420
  Receipt Date: 20060411
  Transmission Date: 20061013
  Serious: Yes (Other)
  Sender: FDA-Public Use
  Company Number: 163-21880-06030073

PATIENT
  Age: 78 Year
  Sex: Female

DRUGS (1)
  1. REVLIMID [Suspect]
     Indication: MYELODYSPLASTIC SYNDROME
     Dosage: 10 MG QD ORAL
     Route: 048
     Dates: start: 20060203, end: 20060223

REACTIONS (11)
  - BLOOD BLISTER [None]
  - CONDITION AGGRAVATED [None]
  - DISEASE PROGRESSION [None]
  - EPISTAXIS [None]
  - HAEMATOCRIT DECREASED [None]
  - HAEMOGLOBIN DECREASED [None]
  - MOUTH HAEMORRHAGE [None]
  - NEUTROPHIL COUNT DECREASED [None]
  - THROMBOCYTOPENIA [None]
  - TONGUE BLISTERING [None]
  - WHITE BLOOD CELL COUNT DECREASED [None]
